FAERS Safety Report 13156920 (Version 1)
Quarter: 2017Q1

REPORT INFORMATION
  Report Type: Report from Study
  Country: FR (occurrence: FR)
  Receive Date: 20170127
  Receipt Date: 20170127
  Transmission Date: 20170428
  Serious: Yes (Other)
  Sender: FDA-Public Use
  Company Number: FR-ROCHE-1884972

PATIENT
  Age: 55 Year
  Sex: Male
  Weight: 73 kg

DRUGS (10)
  1. DAKLINZA [Suspect]
     Active Substance: DACLATASVIR
     Indication: HEPATITIS C
     Route: 065
     Dates: start: 20141028, end: 20150112
  2. SOVALDI [Suspect]
     Active Substance: SOFOSBUVIR
     Route: 065
     Dates: start: 20150702, end: 20151216
  3. DAKLINZA [Suspect]
     Active Substance: DACLATASVIR
     Route: 065
     Dates: start: 20150702, end: 20151216
  4. ABT-493 [Suspect]
     Active Substance: GLECAPREVIR
     Indication: HEPATITIS C
     Dosage: 300/200 MG
     Route: 065
     Dates: start: 20160307, end: 20160530
  5. RIBAVIRIN. [Suspect]
     Active Substance: RIBAVIRIN
     Indication: HEPATITIS C
     Route: 065
     Dates: start: 20150702, end: 20151216
  6. SOVALDI [Suspect]
     Active Substance: SOFOSBUVIR
     Indication: HEPATITIS C
     Route: 065
     Dates: start: 20141028, end: 20150112
  7. OLYSIO [Suspect]
     Active Substance: SIMEPREVIR
     Indication: HEPATITIS C
     Route: 065
     Dates: start: 20150702, end: 20151216
  8. ZOMIG [Concomitant]
     Active Substance: ZOLMITRIPTAN
     Indication: MIGRAINE
     Route: 065
     Dates: start: 2014
  9. ABT-530 [Suspect]
     Active Substance: PIBRENTASVIR
     Indication: HEPATITIS C
     Dosage: 300/200 MG
     Route: 065
     Dates: start: 20160307, end: 20160530
  10. SERETIDE [Concomitant]
     Active Substance: FLUTICASONE PROPIONATE\SALMETEROL XINAFOATE
     Indication: ASTHMA
     Route: 065
     Dates: start: 2014

REACTIONS (1)
  - Hepatocellular carcinoma [Not Recovered/Not Resolved]

NARRATIVE: CASE EVENT DATE: 20160706
